FAERS Safety Report 14790501 (Version 1)
Quarter: 2018Q2

REPORT INFORMATION
  Report Type: Spontaneous
  Country: CN (occurrence: CN)
  Receive Date: 20180423
  Receipt Date: 20180423
  Transmission Date: 20180711
  Serious: Yes (Other)
  Sender: FDA-Public Use
  Company Number: CN-BAYER-2018-068253

PATIENT
  Sex: Male

DRUGS (1)
  1. AVELOX [Suspect]
     Active Substance: MOXIFLOXACIN HYDROCHLORIDE
     Indication: PNEUMONIA
     Dosage: UNK
     Dates: start: 20170529, end: 20170603

REACTIONS (32)
  - Pneumonia [Recovering/Resolving]
  - Arthralgia [Not Recovered/Not Resolved]
  - Renal pain [None]
  - Musculoskeletal pain [None]
  - Musculoskeletal pain [None]
  - Back pain [None]
  - Asthenia [None]
  - Headache [Not Recovered/Not Resolved]
  - Hepatic pain [None]
  - Photophobia [None]
  - Fall [None]
  - Abdominal discomfort [Not Recovered/Not Resolved]
  - Abdominal distension [Not Recovered/Not Resolved]
  - Abdominal pain upper [Not Recovered/Not Resolved]
  - Hypoaesthesia [None]
  - Mobility decreased [None]
  - Discomfort [None]
  - Chest discomfort [None]
  - Dizziness [None]
  - Depression [None]
  - Suicidal ideation [None]
  - Mouth ulceration [None]
  - Hepatitis [Recovering/Resolving]
  - Feeding disorder [None]
  - Arthralgia [None]
  - Drooling [None]
  - Hepatic function abnormal [None]
  - Insomnia [None]
  - Abdominal pain [Not Recovered/Not Resolved]
  - Gait inability [None]
  - Drug ineffective [None]
  - Pain [None]

NARRATIVE: CASE EVENT DATE: 2017
